FAERS Safety Report 17991874 (Version 3)
Quarter: 2020Q3

REPORT INFORMATION
  Report Type: Report from Study
  Country: None (occurrence: TW)
  Receive Date: 20200708
  Receipt Date: 20200810
  Transmission Date: 20201103
  Serious: Yes (Hospitalization, Other)
  Sender: FDA-Public Use
  Company Number: TW-ABBVIE-20K-153-3472953-00

PATIENT
  Age: 47 Year
  Sex: Female
  Weight: 77 kg

DRUGS (4)
  1. METHOTREXATE. [Concomitant]
     Active Substance: METHOTREXATE
     Indication: RHEUMATOID ARTHRITIS
     Route: 048
     Dates: start: 20200217, end: 20200705
  2. EXFORGE [Concomitant]
     Active Substance: AMLODIPINE BESYLATE\VALSARTAN
     Indication: HYPERTENSION
     Dosage: 1#/BID
     Dates: start: 20191202, end: 20200705
  3. ETORICOXIB. [Concomitant]
     Active Substance: ETORICOXIB
     Indication: RHEUMATOID ARTHRITIS
     Dosage: 1#/QD
     Route: 048
     Dates: start: 20200413, end: 20200705
  4. HUMIRA [Suspect]
     Active Substance: ADALIMUMAB
     Indication: PSORIATIC ARTHROPATHY
     Route: 058
     Dates: start: 20200120, end: 20200617

REACTIONS (6)
  - Lung infiltration [Recovering/Resolving]
  - Lung disorder [Recovering/Resolving]
  - Tuberculosis [Recovering/Resolving]
  - Scoliosis [Recovering/Resolving]
  - Pulmonary oedema [Recovered/Resolved]
  - Pneumonia [Recovered/Resolved]

NARRATIVE: CASE EVENT DATE: 2020
